FAERS Safety Report 10665600 (Version 2)
Quarter: 2014Q4

REPORT INFORMATION
  Report Type: Report from Study
  Country: CA (occurrence: CA)
  Receive Date: 20141219
  Receipt Date: 20141219
  Transmission Date: 20150529
  Serious: Yes (Hospitalization)
  Sender: FDA-Public Use
  Company Number: CA-EMD SERONO-7333875

PATIENT
  Age: 12 Year
  Sex: Male

DRUGS (3)
  1. SAIZEN [Suspect]
     Active Substance: SOMATROPIN
     Indication: GROWTH HORMONE DEFICIENCY
     Route: 058
     Dates: start: 20070123
  2. NUTROPIN [Suspect]
     Active Substance: SOMATROPIN
     Indication: BRAIN TUMOUR OPERATION
     Dates: end: 201301
  3. SAIZEN [Suspect]
     Active Substance: SOMATROPIN
     Dates: start: 201306

REACTIONS (3)
  - Cerebrovascular accident [Unknown]
  - Overdose [Unknown]
  - Hemiplegia [Recovering/Resolving]

NARRATIVE: CASE EVENT DATE: 2013
